FAERS Safety Report 20279881 (Version 1)
Quarter: 2021Q4

REPORT INFORMATION
  Report Type: Spontaneous
  Country: US (occurrence: None)
  Receive Date: 20211231
  Receipt Date: 20211231
  Transmission Date: 20220303
  Serious: Yes (Hospitalization)
  Sender: FDA-Public Use
  Company Number: None

PATIENT
  Sex: Male
  Weight: 66.2 kg

DRUGS (3)
  1. CARBOPLATIN [Suspect]
     Active Substance: CARBOPLATIN
  2. PEMBROLIZUMAB [Concomitant]
     Active Substance: PEMBROLIZUMAB
  3. ALIMTA [Concomitant]
     Active Substance: PEMETREXED DISODIUM

REACTIONS (11)
  - Epistaxis [None]
  - Pleural effusion [None]
  - Atelectasis [None]
  - Lung infiltration [None]
  - Productive cough [None]
  - Ventricular tachycardia [None]
  - Pneumonia [None]
  - Asthenia [None]
  - Dyspnoea exertional [None]
  - Disease progression [None]
  - Pulmonary mass [None]

NARRATIVE: CASE EVENT DATE: 20211117
